FAERS Safety Report 16395484 (Version 1)
Quarter: 2019Q2

REPORT INFORMATION
  Report Type: Spontaneous
  Country: US (occurrence: US)
  Receive Date: 20190605
  Receipt Date: 20190605
  Transmission Date: 20190711
  Serious: Yes (Hospitalization, Other)
  Sender: FDA-Public Use
  Company Number: US-PFIZER INC-2019234982

PATIENT
  Age: 51 Year
  Sex: Male
  Weight: 72.57 kg

DRUGS (3)
  1. LYRICA [Suspect]
     Active Substance: PREGABALIN
     Indication: NERVE INJURY
  2. LYRICA [Suspect]
     Active Substance: PREGABALIN
     Indication: STRESS
     Dosage: 75 MG, 2X/DAY [75MG, 1 RED/WHITE CAPSULE BY MOUTH AT 9AM AND 1 BY MOUTH AT 9PM]
     Route: 048
  3. LYRICA [Suspect]
     Active Substance: PREGABALIN
     Indication: ABDOMINAL DISCOMFORT

REACTIONS (7)
  - Dyspepsia [Recovering/Resolving]
  - Pancreatic cyst [Recovered/Resolved]
  - Thrombosis [Unknown]
  - Abdominal pain upper [Unknown]
  - Nausea [Unknown]
  - Gastrointestinal haemorrhage [Unknown]
  - Internal haemorrhage [Recovered/Resolved]

NARRATIVE: CASE EVENT DATE: 20190430
